FAERS Safety Report 10197915 (Version 1)
Quarter: 2014Q2

REPORT INFORMATION
  Report Type: Spontaneous
  Country: FR (occurrence: FR)
  Receive Date: 20140527
  Receipt Date: 20140527
  Transmission Date: 20141212
  Serious: Yes (Hospitalization)
  Sender: FDA-Public Use
  Company Number: FR-B.I. PHARMACEUTICALS,INC./RIDGEFIELD-2014-BI-22306FF

PATIENT
  Age: 86 Year
  Sex: Male

DRUGS (1)
  1. PRADAXA [Suspect]
     Indication: THROMBOSIS PROPHYLAXIS
     Dosage: DOSE PER APPLICATION AND DAILY DOSE: 2 DF
     Route: 048
     Dates: start: 20140228, end: 20140425

REACTIONS (1)
  - Drug ineffective [Recovered/Resolved]
